FAERS Safety Report 8129613-0 (Version None)
Quarter: 2012Q1

REPORT INFORMATION
  Report Type: 
  Country: None (occurrence: None)
  Receive Date: 20120210
  Receipt Date: 20111123
  Transmission Date: 20120608
  Serious: Yes (Other)
  Sender: FDA-Public Use
  Company Number: FR-GLAXOSMITHKLINE-B0764744A

PATIENT
  Sex: Male
  Weight: 73 kg

DRUGS (3)
  1. PREVISCAN [Concomitant]
     Dosage: 1TAB PER DAY
     Route: 048
  2. CHEMOTHERAPY [Concomitant]
     Indication: LYMPHOMA
     Dates: start: 20060817, end: 20070304
  3. VALACYCLOVIR HYDROCHLORIDE [Suspect]
     Indication: ANTIVIRAL PROPHYLAXIS
     Dosage: 500MG PER DAY
     Route: 048
     Dates: start: 20070101, end: 20111101

REACTIONS (2)
  - BONE MARROW DISORDER [None]
  - THROMBOCYTOPENIA [None]
